FAERS Safety Report 6479891-9 (Version None)
Quarter: 2009Q4

REPORT INFORMATION
  Report Type: 
  Country: None (occurrence: None)
  Receive Date: 20091208
  Receipt Date: 20091103
  Transmission Date: 20100525
  Serious: Yes (Other)
  Sender: FDA-Public Use
  Company Number: US-SANOFI-AVENTIS-200918995US

PATIENT
  Age: 80 Year
  Sex: Male

DRUGS (3)
  1. INSULIN GLARGINE [Suspect]
     Dosage: DOSE:35 UNIT(S)
     Route: 058
     Dates: start: 20040101
  2. OPTICLICK [Suspect]
  3. HUMULIN 70/30 [Concomitant]

REACTIONS (4)
  - BLOOD GLUCOSE INCREASED [None]
  - CONDITION AGGRAVATED [None]
  - SKIN CANCER [None]
  - VISUAL ACUITY REDUCED [None]
